FAERS Safety Report 5460408-2 (Version None)
Quarter: 2007Q3

REPORT INFORMATION
  Report Type: 
  Country: None (occurrence: None)
  Receive Date: 20070919
  Receipt Date: 20070706
  Transmission Date: 20080115
  Serious: No
  Sender: FDA-Public Use
  Company Number: US-ASTRAZENECA-2007UW15915

PATIENT
  Age: 26 Year
  Sex: Female
  Weight: 50.3 kg

DRUGS (5)
  1. SEROQUEL [Suspect]
     Indication: BIPOLAR DISORDER
     Route: 048
     Dates: start: 20070615
  2. METHADONE HCL [Concomitant]
  3. SERTRALINE [Concomitant]
  4. RISPERDAL [Concomitant]
  5. TRAZODONE HCL [Concomitant]

REACTIONS (1)
  - FALSE POSITIVE LABORATORY RESULT [None]
